FAERS Safety Report 11923154 (Version 1)
Quarter: 2016Q1

REPORT INFORMATION
  Report Type: Spontaneous
  Country: US (occurrence: US)
  Receive Date: 20160117
  Receipt Date: 20160117
  Transmission Date: 20160526
  Serious: Yes (Other)
  Sender: FDA-Public Use
  Company Number: US-009507513-1601USA005173

PATIENT
  Sex: Female
  Weight: 57.6 kg

DRUGS (2)
  1. SIMVASTATIN TABLETS, USP [Suspect]
     Active Substance: SIMVASTATIN
     Dosage: DISPENSE: 90; 90 DAYS SUPPLY.
     Route: 048
     Dates: start: 20130709
  2. COZAAR [Suspect]
     Active Substance: LOSARTAN POTASSIUM
     Dosage: 1 ORAL EVERY DAY
     Route: 048
     Dates: start: 20120702

REACTIONS (2)
  - Coronary artery bypass [Unknown]
  - Mitral valve replacement [Unknown]

NARRATIVE: CASE EVENT DATE: 2014
